FAERS Safety Report 22339351 (Version 2)
Quarter: 2023Q2

REPORT INFORMATION
  Report Type: Spontaneous
  Country: US (occurrence: US)
  Receive Date: 20230518
  Receipt Date: 20230608
  Transmission Date: 20230721
  Serious: Yes (Hospitalization, Other)
  Sender: FDA-Public Use
  Company Number: US-PFIZER INC-202300191536

PATIENT
  Age: 92 Year
  Sex: Female
  Weight: 57.596 kg

DRUGS (4)
  1. VYNDAMAX [Suspect]
     Active Substance: TAFAMIDIS
     Indication: Cardiac amyloidosis
     Dosage: 61 MG
  2. LEVOTHYROXINE [Concomitant]
     Active Substance: LEVOTHYROXINE
     Dosage: DATE STARTED: A LONG TIME
  3. TORSEMIDE [Concomitant]
     Active Substance: TORSEMIDE
     Dosage: DATE STARTED: 4 OR 5 YEARS
  4. ASPIRIN [Concomitant]
     Active Substance: ASPIRIN
     Dosage: DATE STARTED: A LONG TIME

REACTIONS (5)
  - Myocardial infarction [Unknown]
  - Weight decreased [Unknown]
  - Illness [Unknown]
  - Body height decreased [Unknown]
  - Product dose omission issue [Unknown]

NARRATIVE: CASE EVENT DATE: 20221226
